FAERS Safety Report 9432921 (Version 1)
Quarter: 2013Q3

REPORT INFORMATION
  Report Type: Spontaneous
  Country: JP (occurrence: JP)
  Receive Date: 20130731
  Receipt Date: 20130731
  Transmission Date: 20140515
  Serious: Yes (Other)
  Sender: FDA-Public Use
  Company Number: JP-GILEAD-2013-0068493

PATIENT
  Sex: Male

DRUGS (4)
  1. HEPSERA [Suspect]
     Indication: PRODUCT USED FOR UNKNOWN INDICATION
     Route: 048
  2. HEPSERA [Suspect]
     Dosage: 1 DF, QOD
     Route: 048
  3. ZEFIX [Suspect]
     Indication: PRODUCT USED FOR UNKNOWN INDICATION
     Route: 048
  4. ZEFIX [Suspect]
     Dosage: 50 MG, QD
     Route: 048

REACTIONS (4)
  - Back pain [Unknown]
  - Protein urine present [Unknown]
  - Renal impairment [Unknown]
  - Headache [Unknown]
